FAERS Safety Report 6991369-2 (Version None)
Quarter: 2010Q3

REPORT INFORMATION
  Report Type: 
  Country: None (occurrence: None)
  Receive Date: 20100916
  Receipt Date: 20090601
  Transmission Date: 20110219
  Serious: No
  Sender: FDA-Public Use
  Company Number: US-WYE-H09272109

PATIENT
  Sex: Female
  Weight: 64.92 kg

DRUGS (7)
  1. TORISEL [Suspect]
     Indication: RENAL CELL CARCINOMA
     Route: 042
     Dates: start: 20090402, end: 20090409
  2. TYLENOL [Concomitant]
  3. POTASSIUM [Concomitant]
  4. LASIX [Concomitant]
  5. LISINOPRIL [Concomitant]
  6. ATENOLOL [Concomitant]
  7. FERROUS SULFATE [Concomitant]

REACTIONS (4)
  - DERMATITIS [None]
  - ERYTHEMA [None]
  - RASH [None]
  - SKIN HYPERTROPHY [None]
